FAERS Safety Report 5807999-7 (Version None)
Quarter: 2008Q3

REPORT INFORMATION
  Report Type: 
  Country: None (occurrence: None)
  Receive Date: 20080711
  Receipt Date: 20080701
  Transmission Date: 20090109
  Serious: Yes (Hospitalization, Other)
  Sender: FDA-Public Use
  Company Number: US-PFIZER INC-2008056003

PATIENT
  Sex: Female
  Weight: 104.54 kg

DRUGS (3)
  1. LYRICA [Suspect]
     Indication: NEUROPATHY PERIPHERAL
  2. ALL OTHER THERAPEUTIC PRODUCTS [Concomitant]
  3. INSULIN [Concomitant]

REACTIONS (9)
  - ABSCESS [None]
  - CARDIAC OPERATION [None]
  - INTENTIONAL DRUG MISUSE [None]
  - MALAISE [None]
  - OEDEMA PERIPHERAL [None]
  - STENT PLACEMENT [None]
  - TACHYCARDIA [None]
  - VASCULAR GRAFT [None]
  - WEIGHT DECREASED [None]
